FAERS Safety Report 10674370 (Version 2)
Quarter: 2015Q1

REPORT INFORMATION
  Report Type: Spontaneous
  Country: US (occurrence: US)
  Receive Date: 20141224
  Receipt Date: 20150119
  Transmission Date: 20150720
  Serious: No
  Sender: FDA-Public Use
  Company Number: US-PFIZER INC-2014349608

PATIENT
  Age: 60 Year
  Sex: Female

DRUGS (15)
  1. LIPITOR [Concomitant]
     Active Substance: ATORVASTATIN CALCIUM
     Dosage: 10 MG, QD 90 DAYS
  2. LISINOPRIL AND HYDROCHLOROTHIAZIDE [Concomitant]
     Active Substance: HYDROCHLOROTHIAZIDE\LISINOPRIL
     Dosage: 1QD 90 DAYS
  3. PROCARDIA [Suspect]
     Active Substance: NIFEDIPINE
     Indication: RAYNAUD^S PHENOMENON
     Dosage: 30 MG, DAILY
     Route: 048
     Dates: start: 20141106
  4. LYRICA [Concomitant]
     Active Substance: PREGABALIN
     Dosage: 150 MG, TID 90DAYS
  5. ZOLPIDEM TARTRATE. [Concomitant]
     Active Substance: ZOLPIDEM TARTRATE
     Dosage: 10 MG, QHS 90 DAYS
  6. JANUMET [Concomitant]
     Active Substance: METFORMIN HYDROCHLORIDE\SITAGLIPTIN PHOSPHATE
     Dosage: (METFORMIN HYDROCHLORIDE 1000 MG, SITAGLIPTIN PHOSPHATE MONOHYDRATE 50 MG) 1QD 90 DAYS
  7. BENADRYL [Concomitant]
     Active Substance: DIPHENHYDRAMINE HYDROCHLORIDE
  8. ATENOLOL. [Concomitant]
     Active Substance: ATENOLOL
     Dosage: 100 MG, 1QD 90 DAYS
  9. CARISOPRODOL. [Concomitant]
     Active Substance: CARISOPRODOL
     Dosage: 350 MG, 3X/DAY
  10. OMEPRAZOLE. [Concomitant]
     Active Substance: OMEPRAZOLE
     Dosage: 20 MG, QD 90 DAYS
  11. OPTIVAR [Concomitant]
     Active Substance: AZELASTINE HYDROCHLORIDE
     Dosage: 0.05 %, UD 30 DAYS
  12. ZOLOFT [Concomitant]
     Active Substance: SERTRALINE HYDROCHLORIDE
     Dosage: 50 MG, 1 QD 90 DAYS
  13. SINGULAIR [Concomitant]
     Active Substance: MONTELUKAST SODIUM
     Dosage: 10 MG, 1X/DAY
  14. ASTELIN [Concomitant]
     Active Substance: AZELASTINE HYDROCHLORIDE
     Dosage: 137 MCG/SPRAY, UD 30 DAYS
  15. METFORMIN [Concomitant]
     Active Substance: METFORMIN HYDROCHLORIDE

REACTIONS (5)
  - Swelling [Recovered/Resolved]
  - Flushing [Recovered/Resolved]
  - Off label use [Unknown]
  - Drug intolerance [Unknown]
  - Pruritus [Recovered/Resolved]

NARRATIVE: CASE EVENT DATE: 20141204
